FAERS Safety Report 12134873 (Version 2)
Quarter: 2016Q1

REPORT INFORMATION
  Report Type: Spontaneous
  Country: US (occurrence: US)
  Receive Date: 20160301
  Receipt Date: 20160303
  Transmission Date: 20160526
  Serious: Yes (Congenital Anomaly)
  Sender: FDA-Public Use
  Company Number: US-ABBVIE-16P-163-1567678-00

PATIENT
  Sex: Male

DRUGS (1)
  1. DEPAKOTE [Suspect]
     Active Substance: DIVALPROEX SODIUM
     Indication: MATERNAL EXPOSURE TIMING UNSPECIFIED
     Route: 064

REACTIONS (6)
  - Autism spectrum disorder [Unknown]
  - Speech disorder developmental [Unknown]
  - Psychomotor skills impaired [Unknown]
  - Foetal exposure during pregnancy [Unknown]
  - Hypospadias [Unknown]
  - Developmental delay [Unknown]
